FAERS Safety Report 9499642 (Version 1)
Quarter: 2013Q3

REPORT INFORMATION
  Report Type: Spontaneous
  Country: JP (occurrence: None)
  Receive Date: 20130903
  Receipt Date: 20130903
  Transmission Date: 20140515
  Serious: Yes (Other)
  Sender: FDA-Public Use
  Company Number: JP-012834

PATIENT
  Sex: Male

DRUGS (1)
  1. DEGARELIX [Suspect]
     Indication: PROSTATE CANCER
     Dosage: 80 MG 1X/ MONTH SC
     Route: 058

REACTIONS (3)
  - Pleural effusion [None]
  - Cardiac failure [None]
  - Oedema [None]
